FAERS Safety Report 9278270 (Version 2)
Quarter: 2013Q2

REPORT INFORMATION
  Report Type: Report from Study
  Country: HR (occurrence: HR)
  Receive Date: 20130508
  Receipt Date: 20130520
  Transmission Date: 20140414
  Serious: Yes (Life-Threatening, Hospitalization, Disabling)
  Sender: FDA-Public Use
  Company Number: HR-SANOFI-AVENTIS-2013SA046330

PATIENT
  Age: 65 Year
  Sex: Male
  Weight: 85 kg

DRUGS (4)
  1. INSULIN GLARGINE [Suspect]
     Indication: TYPE 2 DIABETES MELLITUS
     Dosage: IN THE EVENING
     Route: 058
     Dates: start: 20121012
  2. CRESTOR [Concomitant]
     Indication: DYSLIPIDAEMIA
     Route: 048
  3. VALSARTAN [Concomitant]
     Indication: HYPERTENSION
     Route: 048
  4. ASPIRIN [Concomitant]
     Indication: CARDIOVASCULAR EVENT PROPHYLAXIS
     Route: 048

REACTIONS (1)
  - Aortic aneurysm rupture [Unknown]
